FAERS Safety Report 16160419 (Version 2)
Quarter: 2019Q2

REPORT INFORMATION
  Report Type: Spontaneous
  Country: US (occurrence: US)
  Receive Date: 20190404
  Receipt Date: 20190425
  Transmission Date: 20190711
  Serious: No
  Sender: FDA-Public Use
  Company Number: US-B.I. PHARMACEUTICALS,INC./RIDGEFIELD-2019-BI-014943

PATIENT
  Age: 81 Year
  Sex: Female

DRUGS (1)
  1. SPIRIVA [Suspect]
     Active Substance: TIOTROPIUM BROMIDE MONOHYDRATE
     Indication: ASTHMA
     Dosage: STRENGTH: 18 MCG; FORMULATION: CAPSULE? ADMINISTRATION CORRECT? NO : DOSE NOT CHANGED
     Route: 055

REACTIONS (3)
  - Product quality issue [Unknown]
  - Overdose [Recovered/Resolved]
  - Off label use [Unknown]

NARRATIVE: CASE EVENT DATE: 20190331
